FAERS Safety Report 5328260-3 (Version None)
Quarter: 2007Q2

REPORT INFORMATION
  Report Type: 
  Country: None (occurrence: None)
  Receive Date: 20070516
  Receipt Date: 20070516
  Transmission Date: 20071010
  Serious: Yes (Other)
  Sender: FDA-Public Use
  Company Number: None

PATIENT
  Age: 50 Year
  Sex: Female
  Weight: 136.0791 kg

DRUGS (1)
  1. ZOCOR [Suspect]
     Indication: HIGH DENSITY LIPOPROTEIN
     Dosage: PO QD
     Route: 048
     Dates: start: 20070401

REACTIONS (2)
  - DRY MOUTH [None]
  - PHARMACEUTICAL PRODUCT COMPLAINT [None]
